FAERS Safety Report 17225058 (Version 1)
Quarter: 2020Q1

REPORT INFORMATION
  Report Type: Spontaneous
  Country: SE (occurrence: SE)
  Receive Date: 20200102
  Receipt Date: 20200102
  Transmission Date: 20200409
  Serious: Yes (Hospitalization)
  Sender: FDA-Public Use
  Company Number: SE-MYLANLABS-2019M1131594

PATIENT
  Sex: Female

DRUGS (2)
  1. LERGIGAN (PROMETHAZINE) [Suspect]
     Active Substance: PROMETHAZINE HYDROCHLORIDE
     Indication: PRODUCT USED FOR UNKNOWN INDICATION
     Dosage: 25 MG, 50 ST SEDAN I ONSDAGS DOSERING: 1-2 TABLETTER 1-3 GANGER DAGLIGEN
     Route: 048
     Dates: start: 20180314, end: 20180319
  2. ANTABUS [Concomitant]
     Active Substance: DISULFIRAM
     Dosage: UNK

REACTIONS (2)
  - Muscle twitching [Unknown]
  - Intentional overdose [Unknown]

NARRATIVE: CASE EVENT DATE: 201803
